FAERS Safety Report 6106733-3 (Version None)
Quarter: 2009Q1

REPORT INFORMATION
  Report Type: 
  Country: None (occurrence: None)
  Receive Date: 20090304
  Receipt Date: 20090220
  Transmission Date: 20090719
  Serious: Yes (Death)
  Sender: FDA-Public Use
  Company Number: B0561777A

PATIENT
  Sex: 0

DRUGS (1)
  1. BUSULPHAN (FORMULATION UNKNOWN) (GENERIC) (BUSULFAN) [Suspect]

REACTIONS (4)
  - BONE MARROW TRANSPLANT [None]
  - CHRONIC OBSTRUCTIVE PULMONARY DISEASE [None]
  - PULMONARY TOXICITY [None]
  - STEM CELL TRANSPLANT [None]
